FAERS Safety Report 6688631-X (Version None)
Quarter: 2010Q2

REPORT INFORMATION
  Report Type: 
  Country: None (occurrence: None)
  Receive Date: 20100420
  Receipt Date: 20100315
  Transmission Date: 20101027
  Serious: Yes (Hospitalization, Disabling, Other)
  Sender: FDA-Public Use
  Company Number: US-BAXTER-2010BH004225

PATIENT
  Age: 49 Year
  Sex: Male
  Weight: 79 kg

DRUGS (2)
  1. HEPARIN SODIUM INJECTION [Suspect]
     Indication: INTRAVENOUS CATHETER MANAGEMENT
     Route: 042
     Dates: start: 20051101, end: 20060601
  2. VANCOMYCIN HCL [Suspect]
     Indication: INFECTION
     Route: 042
     Dates: start: 20051101, end: 20060601

REACTIONS (4)
  - ARRHYTHMIA [None]
  - DRUG INEFFECTIVE [None]
  - LABORATORY TEST ABNORMAL [None]
  - MALAISE [None]
